FAERS Safety Report 18084891 (Version 1)
Quarter: 2020Q3

REPORT INFORMATION
  Report Type: Spontaneous
  Country: US (occurrence: US)
  Receive Date: 20200728
  Receipt Date: 20200728
  Transmission Date: 20201103
  Serious: No
  Sender: FDA-Public Use
  Company Number: US-PERRIGO-20US005297

PATIENT
  Sex: Male
  Weight: 102.04 kg

DRUGS (2)
  1. MINOXIDIL. [Suspect]
     Active Substance: MINOXIDIL
     Indication: ALOPECIA
     Dosage: 1 ML, 1 TO 2 TIMES DAILY
     Route: 061
     Dates: start: 2019, end: 2019
  2. MINOXIDIL. [Suspect]
     Active Substance: MINOXIDIL
     Dosage: 1 ML, 1 TO 2 TIMES DAILY
     Route: 061
     Dates: start: 202004, end: 202004

REACTIONS (4)
  - Application site exfoliation [Not Recovered/Not Resolved]
  - Application site scab [Recovered/Resolved]
  - Application site discomfort [Not Recovered/Not Resolved]
  - Inappropriate schedule of product administration [Recovered/Resolved]

NARRATIVE: CASE EVENT DATE: 2019
